FAERS Safety Report 21146581 (Version 2)
Quarter: 2022Q3

REPORT INFORMATION
  Report Type: Spontaneous
  Country: US (occurrence: US)
  Receive Date: 20220729
  Receipt Date: 20220826
  Transmission Date: 20221026
  Serious: No
  Sender: FDA-Public Use
  Company Number: US-BIOGEN-2022BI01142623

PATIENT
  Sex: Female

DRUGS (1)
  1. PLEGRIDY [Suspect]
     Active Substance: PEGINTERFERON BETA-1A
     Indication: Multiple sclerosis
     Route: 050
     Dates: start: 20220304

REACTIONS (9)
  - Drug dose omission by device [Unknown]
  - Drug delivery system malfunction [Unknown]
  - Balance disorder [Unknown]
  - Fatigue [Unknown]
  - Hypoaesthesia [Unknown]
  - Injection site erythema [Unknown]
  - Injection site warmth [Unknown]
  - Influenza like illness [Unknown]
  - Injection site pain [Recovered/Resolved]

NARRATIVE: CASE EVENT DATE: 20220101
